FAERS Safety Report 25701883 (Version 1)
Quarter: 2025Q3

REPORT INFORMATION
  Report Type: Spontaneous
  Country: US (occurrence: US)
  Receive Date: 20250819
  Receipt Date: 20250819
  Transmission Date: 20251020
  Serious: No
  Sender: GALPHARM INTERNATIONAL
  Company Number: US-PERRIGO-25US002368

PATIENT
  Age: 72 Year
  Sex: Female
  Weight: 49.433 kg

DRUGS (1)
  1. MINOXIDIL [Suspect]
     Active Substance: MINOXIDIL
     Indication: Hair texture abnormal
     Dosage: 1 ML, BID
     Route: 061
     Dates: start: 20250205, end: 20250207

REACTIONS (3)
  - Trichorrhexis [Not Recovered/Not Resolved]
  - Alopecia [Not Recovered/Not Resolved]
  - Off label use [Unknown]

NARRATIVE: CASE EVENT DATE: 20250205
